FAERS Safety Report 5896418-0 (Version None)
Quarter: 2008Q3

REPORT INFORMATION
  Report Type: 
  Country: None (occurrence: None)
  Receive Date: 20080924
  Receipt Date: 20070719
  Transmission Date: 20090109
  Serious: Yes (Hospitalization, Other)
  Sender: FDA-Public Use
  Company Number: US-BAYER-200711729BWH

PATIENT
  Age: 57 Year
  Sex: Female

DRUGS (8)
  1. AVELOX [Suspect]
     Indication: UPPER RESPIRATORY TRACT INFECTION
     Dosage: AS USED: 400 MG  UNIT DOSE: 400 MG
     Route: 048
     Dates: start: 20070531
  2. AVELOX [Suspect]
     Route: 048
  3. ZOCOR [Concomitant]
  4. ZOLOFT [Concomitant]
  5. NEXIUM [Concomitant]
  6. TRILEPTAL [Concomitant]
  7. LAMICTAL [Concomitant]
  8. ZITHROMAX [Concomitant]

REACTIONS (8)
  - BACK PAIN [None]
  - CONVULSION [None]
  - DYSPNOEA [None]
  - INSOMNIA [None]
  - NAUSEA [None]
  - NECK PAIN [None]
  - NONSPECIFIC REACTION [None]
  - RASH [None]
